FAERS Safety Report 21362761 (Version 3)
Quarter: 2022Q4

REPORT INFORMATION
  Report Type: Spontaneous
  Country: US (occurrence: US)
  Receive Date: 20220922
  Receipt Date: 20221011
  Transmission Date: 20230112
  Serious: Yes (Hospitalization, Other)
  Sender: FDA-Public Use
  Company Number: US-GLAXOSMITHKLINE-US2022AMR135668

PATIENT

DRUGS (2)
  1. ZEJULA [Suspect]
     Active Substance: NIRAPARIB
     Indication: Ovarian cancer
     Dosage: 300 MG
     Dates: start: 20220815, end: 20220829
  2. ZEJULA [Suspect]
     Active Substance: NIRAPARIB
     Dosage: 200 MG
     Dates: start: 20220829, end: 20220906

REACTIONS (12)
  - Platelet count decreased [Unknown]
  - Vomiting [Recovered/Resolved]
  - Diarrhoea [Recovered/Resolved]
  - Epistaxis [Recovered/Resolved]
  - Sepsis [Recovered/Resolved]
  - Neutrophil count decreased [Unknown]
  - Nausea [Recovered/Resolved]
  - Insomnia [Unknown]
  - Weight decreased [Unknown]
  - Blood lactic acid increased [Unknown]
  - Blood creatinine increased [Unknown]
  - Blood urea increased [Unknown]

NARRATIVE: CASE EVENT DATE: 20220820
